FAERS Safety Report 20852998 (Version 1)
Quarter: 2022Q2

REPORT INFORMATION
  Report Type: Spontaneous
  Country: CH (occurrence: CH)
  Receive Date: 20220520
  Receipt Date: 20220520
  Transmission Date: 20220721
  Serious: Yes (Hospitalization, Other)
  Sender: FDA-Public Use
  Company Number: CH-TAKEDA-2022TUS032983

PATIENT
  Age: 41 Year
  Sex: Female

DRUGS (16)
  1. PRUCALOPRIDE SUCCINATE [Suspect]
     Active Substance: PRUCALOPRIDE SUCCINATE
     Indication: Product used for unknown indication
     Dosage: 1 MILLIGRAM
     Route: 048
  2. FENTANYL TRANSDERMAL SYSTEM [Suspect]
     Active Substance: FENTANYL
     Indication: Product used for unknown indication
     Route: 062
  3. NAPROXEN [Suspect]
     Active Substance: NAPROXEN
     Indication: Product used for unknown indication
     Dosage: 550 MILLIGRAM
     Route: 048
  4. DIENOGEST [Suspect]
     Active Substance: DIENOGEST
     Indication: Product used for unknown indication
     Route: 065
  5. LINACLOTIDE [Suspect]
     Active Substance: LINACLOTIDE
     Indication: Product used for unknown indication
     Route: 048
  6. KLEAN-PREP [Suspect]
     Active Substance: ELECTROLYTES NOS\POLYETHYLENE GLYCOL 3350
     Indication: Product used for unknown indication
     Route: 048
  7. RELISTOR [Suspect]
     Active Substance: METHYLNALTREXONE BROMIDE
     Indication: Product used for unknown indication
     Route: 058
  8. ELECTROLYTES NOS\POLYETHYLENE GLYCOL 4000 [Suspect]
     Active Substance: ELECTROLYTES NOS\POLYETHYLENE GLYCOL 4000
     Indication: Product used for unknown indication
     Dosage: UNK UNK, QD
     Route: 065
  9. FREKA-CLYSS [Concomitant]
     Route: 065
  10. KETAMINE [Concomitant]
     Active Substance: KETAMINE
     Route: 048
  11. ACETAMINOPHEN [Concomitant]
     Active Substance: ACETAMINOPHEN
     Route: 065
  12. VALPROATE [Concomitant]
     Active Substance: VALPROIC ACID
     Route: 065
  13. TRAZODONE [Concomitant]
     Active Substance: TRAZODONE HYDROCHLORIDE
     Route: 065
  14. ZOPICLONE [Concomitant]
     Active Substance: ZOPICLONE
     Route: 065
  15. MELATONIN [Concomitant]
     Active Substance: MELATONIN
     Route: 065
  16. CHOLECALCIFEROL [Concomitant]
     Active Substance: CHOLECALCIFEROL
     Route: 065

REACTIONS (3)
  - Volvulus [Recovered/Resolved]
  - Constipation [Not Recovered/Not Resolved]
  - Abdominal pain [Not Recovered/Not Resolved]

NARRATIVE: CASE EVENT DATE: 20200101
